FAERS Safety Report 11605391 (Version 1)
Quarter: 2015Q4

REPORT INFORMATION
  Report Type: Spontaneous
  Country: US (occurrence: US)
  Receive Date: 20151007
  Receipt Date: 20151007
  Transmission Date: 20160304
  Serious: Yes (Death, Hospitalization)
  Sender: FDA-Public Use
  Company Number: US-WEST-WARD PHARMACEUTICALS CORP.-US-H14001-15-01754

PATIENT
  Age: 61 Year
  Sex: Male

DRUGS (1)
  1. ISONIAZID. [Suspect]
     Active Substance: ISONIAZID
     Indication: LATENT TUBERCULOSIS
     Route: 065

REACTIONS (6)
  - Drug-induced liver injury [Fatal]
  - Hepatotoxicity [None]
  - Encephalopathy [Unknown]
  - Metabolic acidosis [Unknown]
  - Shock [Unknown]
  - Visual impairment [Unknown]
